FAERS Safety Report 12335267 (Version 2)
Quarter: 2016Q2

REPORT INFORMATION
  Report Type: Report from Study
  Country: US (occurrence: US)
  Receive Date: 20160504
  Receipt Date: 20160613
  Transmission Date: 20160815
  Serious: Yes (Other)
  Sender: FDA-Public Use
  Company Number: US-BIOGEN-2016BI00230592

PATIENT
  Sex: Female

DRUGS (2)
  1. AVONEX [Suspect]
     Active Substance: INTERFERON BETA-1A
     Dates: end: 2005
  2. AVONEX [Suspect]
     Active Substance: INTERFERON BETA-1A
     Indication: MULTIPLE SCLEROSIS
     Route: 065
     Dates: start: 20021023, end: 20031231

REACTIONS (6)
  - Coma [Recovered/Resolved with Sequelae]
  - Depression [Recovered/Resolved]
  - Psychogenic seizure [Recovered/Resolved]
  - Adverse drug reaction [Recovered/Resolved]
  - Flushing [Unknown]
  - Cognitive disorder [Unknown]
